FAERS Safety Report 23950203 (Version 1)
Quarter: 2024Q2

REPORT INFORMATION
  Report Type: Spontaneous
  Country: CN (occurrence: None)
  Receive Date: 20240607
  Receipt Date: 20240607
  Transmission Date: 20240715
  Serious: Yes (Disabling)
  Sender: FDA-Public Use
  Company Number: CN-ROCHE-3575379

PATIENT
  Age: 78 Year
  Sex: Male
  Weight: 74 kg

DRUGS (3)
  1. TECENTRIQ [Suspect]
     Active Substance: ATEZOLIZUMAB
     Indication: Lung neoplasm malignant
     Dosage: ADMINISTERED AT 28 MAR 2024, 23 APR 2024, DAY4
     Route: 041
     Dates: start: 20240517, end: 20240517
  2. ETOPOSIDE [Suspect]
     Active Substance: ETOPOSIDE
     Indication: Lung neoplasm malignant
     Dosage: ADMINISTERED AT 28 MAR 2024, 23 APR 2024, DAY1-5
     Route: 041
     Dates: start: 20240514, end: 20240518
  3. CARBOPLATIN [Suspect]
     Active Substance: CARBOPLATIN
     Indication: Lung neoplasm malignant
     Dosage: ADMINISTERED AT 28 MAR 2024, 23 APR 2024, DAY1
     Route: 041
     Dates: start: 20240514, end: 20240514

REACTIONS (1)
  - Myelosuppression [Recovering/Resolving]

NARRATIVE: CASE EVENT DATE: 20240527
